FAERS Safety Report 24577874 (Version 1)
Quarter: 2024Q4

REPORT INFORMATION
  Report Type: Spontaneous
  Country: CA (occurrence: CA)
  Receive Date: 20241104
  Receipt Date: 20241104
  Transmission Date: 20250114
  Serious: Yes (Hospitalization, Other)
  Sender: PURDUE
  Company Number: CA-PURDUE-USA-2024-0312969

PATIENT
  Age: 57 Year
  Sex: Male

DRUGS (11)
  1. BUPRENORPHINE HYDROCHLORIDE AND NALOXONE HYDROCHLORIDE [Suspect]
     Active Substance: BUPRENORPHINE HYDROCHLORIDE\NALOXONE HYDROCHLORIDE
     Indication: Drug dependence
     Dosage: UNK
     Route: 065
  2. BUPRENORPHINE HYDROCHLORIDE AND NALOXONE HYDROCHLORIDE [Suspect]
     Active Substance: BUPRENORPHINE HYDROCHLORIDE\NALOXONE HYDROCHLORIDE
     Indication: Analgesic therapy
  3. CITALOPRAM [Suspect]
     Active Substance: CITALOPRAM
     Indication: Product used for unknown indication
     Dosage: 40 MILLIGRAM, DAILY
     Route: 065
  4. QUETIAPINE [Suspect]
     Active Substance: QUETIAPINE
     Indication: Product used for unknown indication
     Dosage: 400 MILLIGRAM, DAILY
     Route: 065
  5. ARIPIPRAZOLE [Suspect]
     Active Substance: ARIPIPRAZOLE
     Indication: Product used for unknown indication
     Dosage: 10 MILLIGRAM, DAILY
     Route: 065
  6. DULOXETINE [Suspect]
     Active Substance: DULOXETINE
     Indication: Product used for unknown indication
     Dosage: 120 MILLIGRAM, DAILY
     Route: 065
  7. ZOPICLONE [Suspect]
     Active Substance: ZOPICLONE
     Indication: Product used for unknown indication
     Dosage: 7.5 MILLIGRAM, DAILY
     Route: 065
  8. MIRTAZAPINE [Suspect]
     Active Substance: MIRTAZAPINE
     Indication: Product used for unknown indication
     Dosage: 30 MILLIGRAM, DAILY
     Route: 065
  9. GABAPENTIN [Concomitant]
     Active Substance: GABAPENTIN
     Indication: Pain
     Dosage: 600 MILLIGRAM, DAILY
     Route: 065
  10. GABAPENTIN [Concomitant]
     Active Substance: GABAPENTIN
     Indication: Restless legs syndrome
  11. TRAZODONE [Concomitant]
     Active Substance: TRAZODONE HYDROCHLORIDE
     Indication: Sleep disorder
     Dosage: UNK
     Route: 065

REACTIONS (8)
  - Rhabdomyolysis [Unknown]
  - Acute kidney injury [Unknown]
  - Delirium [Unknown]
  - Dementia [Recovered/Resolved]
  - Overdose [Unknown]
  - Drug use disorder [Unknown]
  - Substance abuse [Unknown]
  - Loss of personal independence in daily activities [Recovered/Resolved]
